FAERS Safety Report 7520734-X (Version None)
Quarter: 2011Q2

REPORT INFORMATION
  Report Type: 
  Country: None (occurrence: None)
  Receive Date: 20110603
  Receipt Date: 20100525
  Transmission Date: 20111010
  Serious: Yes (Life-Threatening, Hospitalization, Disabling, Other)
  Sender: FDA-Public Use
  Company Number: US-BAYER-200941417NA

PATIENT
  Age: 48 Year
  Sex: Female
  Weight: 123 kg

DRUGS (24)
  1. LASIX [Concomitant]
     Indication: PRODUCT USED FOR UNKNOWN INDICATION
  2. CATAPRES [Concomitant]
     Dosage: ON CHEST WALL
  3. COLACE [Concomitant]
     Route: 048
  4. HEPARIN [Suspect]
     Indication: PULMONARY EMBOLISM
  5. FLONASE [Concomitant]
  6. CANCIDAS [Concomitant]
     Dosage: 50 MG (DAILY DOSE), QD, INTRAVENOUS
     Route: 042
  7. TYLENOL (CAPLET) [Concomitant]
     Dosage: EVERY 6HRS AS NEEDED
     Dates: start: 20070101
  8. KEPPRA [Concomitant]
     Route: 048
  9. SENOKOT [Concomitant]
     Dosage: ONE TABLET ORALLY TWICE DAILY
     Route: 048
  10. PROTONIX [Concomitant]
     Dosage: 40 MG (DAILY DOSE), , ORAL
     Route: 048
  11. LANTUS [Concomitant]
     Route: 058
  12. LISINOPRIL [Concomitant]
     Route: 048
  13. MOM [Concomitant]
     Dosage: 30 ML (DAILY DOSE), PRN, ORAL
     Route: 048
  14. CANCIDAS [Concomitant]
     Indication: CANDIDA SEPSIS
     Dates: start: 20071124
  15. LACTULOSE [Concomitant]
     Route: 048
  16. ZOFRAN [Concomitant]
     Route: 042
  17. TISSUE PLASMINOGEN ACTIVATOR [Suspect]
     Indication: PULMONARY EMBOLISM
     Route: 040
     Dates: start: 20071113, end: 20071101
  18. PLATELETS [Concomitant]
     Indication: DISSEMINATED INTRAVASCULAR COAGULATION
  19. FENTANYL [Concomitant]
     Dosage: 50MG Q2HR PRN
     Route: 042
  20. LACRI-LUBE [Concomitant]
     Indication: DRY EYE
     Dosage: ONE RIBBON TO BOTH EYES
     Route: 047
  21. YAZ [Suspect]
     Indication: PREMENSTRUAL SYNDROME
     Dosage: 1 DF (DAILY DOSE), QD, ORAL
     Route: 048
     Dates: start: 20071001, end: 20071113
  22. ALLEGRA [Concomitant]
  23. CORTICOSTEROIDS [Concomitant]
     Indication: PRODUCT USED FOR UNKNOWN INDICATION
  24. HUMALOG [Concomitant]
     Dosage: SLIDING SCALE

REACTIONS (19)
  - CONFUSIONAL STATE [None]
  - AMNESIA [None]
  - CARDIAC ARREST [None]
  - SYNCOPE [None]
  - HYPOTENSION [None]
  - BRAIN OEDEMA [None]
  - HAEMORRHAGIC STROKE [None]
  - DYSARTHRIA [None]
  - APHASIA [None]
  - HEMIPLEGIA [None]
  - ATRIAL FIBRILLATION [None]
  - DYSPNOEA [None]
  - INTRACRANIAL HAEMATOMA [None]
  - HEMIPARESIS [None]
  - RESPIRATORY ARREST [None]
  - HYPERTENSION [None]
  - DEEP VEIN THROMBOSIS [None]
  - PULMONARY EMBOLISM [None]
  - MENTAL STATUS CHANGES [None]
